FAERS Safety Report 12890345 (Version 1)
Quarter: 2016Q4

REPORT INFORMATION
  Report Type: Spontaneous
  Country: US (occurrence: US)
  Receive Date: 20161027
  Receipt Date: 20161027
  Transmission Date: 20170207
  Serious: No
  Sender: FDA-Public Use
  Company Number: GXBR2016US002238

PATIENT
  Sex: Male
  Weight: 89.8 kg

DRUGS (4)
  1. ATENOLOL. [Concomitant]
     Active Substance: ATENOLOL
     Dosage: UNK DF, UNK
  2. BUMETANIDE TABLETS, USP [Suspect]
     Active Substance: BUMETANIDE
     Indication: SCROTAL OEDEMA
     Dosage: 2 MG, BID
     Route: 048
     Dates: start: 20160707, end: 20160710
  3. BUMETANIDE TABLETS, USP [Suspect]
     Active Substance: BUMETANIDE
     Dosage: 1 MG, QD
     Route: 048
     Dates: start: 20160711
  4. BUMETANIDE TABLETS, USP [Suspect]
     Active Substance: BUMETANIDE
     Indication: DIURETIC THERAPY
     Dosage: 2 MG, QD
     Route: 048
     Dates: start: 20160703, end: 20160706

REACTIONS (6)
  - Limb discomfort [Recovering/Resolving]
  - Haemorrhage [Recovering/Resolving]
  - Pruritus [Recovering/Resolving]
  - Feeling abnormal [Recovering/Resolving]
  - Insomnia [Recovering/Resolving]
  - Nightmare [Recovering/Resolving]
